FAERS Safety Report 15626942 (Version 2)
Quarter: 2018Q4

REPORT INFORMATION
  Report Type: Spontaneous
  Country: HK (occurrence: HK)
  Receive Date: 20181116
  Receipt Date: 20181128
  Transmission Date: 20190205
  Serious: Yes (Other)
  Sender: FDA-Public Use
  Company Number: HK-PFIZER INC-2018468095

PATIENT
  Age: 13 Year
  Sex: Male

DRUGS (2)
  1. DOXEPIN HCL [Suspect]
     Active Substance: DOXEPIN HYDROCHLORIDE
     Indication: URTICARIA CHRONIC
     Dosage: UNK
  2. FAMOTIDINE. [Suspect]
     Active Substance: FAMOTIDINE
     Indication: URTICARIA CHRONIC
     Dosage: UNK

REACTIONS (2)
  - Idiosyncratic drug reaction [Recovered/Resolved]
  - Autoimmune hepatitis [Recovered/Resolved]
